FAERS Safety Report 10387479 (Version 1)
Quarter: 2014Q3

REPORT INFORMATION
  Report Type: Spontaneous
  Country: US (occurrence: US)
  Receive Date: 20140815
  Receipt Date: 20140815
  Transmission Date: 20150326
  Serious: No
  Sender: FDA-Public Use
  Company Number: US-TARO-2013P1018900

PATIENT
  Sex: Male
  Weight: 74.84 kg

DRUGS (2)
  1. TOLNAFTATE CREAM 1% [Suspect]
     Active Substance: TOLNAFTATE
     Indication: PRURITUS
     Dosage: BID
     Dates: start: 20130726, end: 20130826
  2. ATHLETES FOOT NOS [Suspect]
     Active Substance: MICONAZOLE NITRATE OR TERBINAFINE HYDROCHLORIDE OR TOLNAFTATE
     Indication: PRURITUS
     Dosage: BID
     Dates: start: 20130813, end: 20130826

REACTIONS (1)
  - Drug ineffective [Not Recovered/Not Resolved]

NARRATIVE: CASE EVENT DATE: 2013
